FAERS Safety Report 26188582 (Version 1)
Quarter: 2025Q4

REPORT INFORMATION
  Report Type: Spontaneous
  Country: JP (occurrence: JP)
  Receive Date: 20251222
  Receipt Date: 20251222
  Transmission Date: 20260118
  Serious: Yes (Hospitalization)
  Sender: BIOMARIN
  Company Number: JP-BIOMARINAP-JP-2025-170806

PATIENT
  Sex: Male
  Weight: 6.71 kg

DRUGS (3)
  1. VOXZOGO [Suspect]
     Active Substance: VOSORITIDE
     Indication: Osteochondrodysplasia
     Dosage: 0.2 MILLIGRAM, QD
     Dates: start: 20250813
  2. VOXZOGO [Suspect]
     Active Substance: VOSORITIDE
     Dosage: 0.12 MILLIGRAM, QD
     Dates: start: 20250312, end: 20250513
  3. VOXZOGO [Suspect]
     Active Substance: VOSORITIDE
     Dosage: 0.16 MILLIGRAM, QD
     Dates: start: 20250514, end: 20250812

REACTIONS (9)
  - Respiratory syncytial virus bronchiolitis [Recovered/Resolved]
  - Cough [Recovered/Resolved]
  - Rhinorrhoea [Recovered/Resolved]
  - Pyrexia [Recovered/Resolved]
  - Use of accessory respiratory muscles [Recovered/Resolved]
  - Dyspnoea [Recovered/Resolved]
  - Obstructive airways disorder [Recovered/Resolved]
  - Oxygen consumption increased [Recovered/Resolved]
  - Lung infiltration [Recovered/Resolved]

NARRATIVE: CASE EVENT DATE: 20251029
